FAERS Safety Report 9964231 (Version 2)
Quarter: 2014Q2

REPORT INFORMATION
  Report Type: Spontaneous
  Country: GR (occurrence: GR)
  Receive Date: 20140305
  Receipt Date: 20140609
  Transmission Date: 20141212
  Serious: Yes (Hospitalization, Disabling)
  Sender: FDA-Public Use
  Company Number: GR-B.I. PHARMACEUTICALS,INC./RIDGEFIELD-2014-BI-08942GB

PATIENT
  Age: 82 Year
  Sex: Female

DRUGS (6)
  1. PRADAXA [Suspect]
     Indication: ATRIAL FIBRILLATION
     Dosage: 220 MG
     Route: 048
     Dates: start: 201402, end: 201402
  2. LOPRESOR [Concomitant]
     Indication: HYPERTENSION
     Route: 065
  3. LASIX [Concomitant]
     Indication: DIURETIC THERAPY
     Route: 065
  4. LASIX [Concomitant]
     Indication: HYPERTENSION
  5. APROVEL [Concomitant]
     Indication: HYPERTENSION
     Route: 065
  6. MANYPER [Concomitant]
     Indication: HYPERTENSION
     Route: 065

REACTIONS (3)
  - Retinal artery occlusion [Not Recovered/Not Resolved]
  - Vision blurred [Not Recovered/Not Resolved]
  - Blindness [Not Recovered/Not Resolved]
